FAERS Safety Report 9373026 (Version 2)
Quarter: 2013Q4

REPORT INFORMATION
  Report Type: Spontaneous
  Country: GB (occurrence: GB)
  Receive Date: 20130627
  Receipt Date: 20131028
  Transmission Date: 20140711
  Serious: Yes (Death, Other)
  Sender: FDA-Public Use
  Company Number: GB-JNJFOC-20130615316

PATIENT
  Age: 89 Year
  Sex: Female
  Weight: 57 kg

DRUGS (5)
  1. XARELTO [Suspect]
     Indication: CEREBROVASCULAR ACCIDENT PROPHYLAXIS
     Route: 048
     Dates: start: 20130325, end: 20130512
  2. XARELTO [Suspect]
     Indication: ATRIAL FIBRILLATION
     Route: 048
     Dates: start: 20130325, end: 20130512
  3. DIGOXIN [Concomitant]
     Indication: ATRIAL FIBRILLATION
     Route: 048
     Dates: start: 20130325, end: 20130512
  4. FUROSEMIDE [Concomitant]
     Indication: ATRIAL FIBRILLATION
     Route: 048
     Dates: start: 201202, end: 20130512
  5. FUROSEMIDE [Concomitant]
     Indication: JOINT SWELLING
     Route: 048
     Dates: start: 201202, end: 20130512

REACTIONS (3)
  - Myocardial ischaemia [Fatal]
  - Myocardial infarction [Not Recovered/Not Resolved]
  - Circulatory collapse [Not Recovered/Not Resolved]
